FAERS Safety Report 19810630 (Version 1)
Quarter: 2021Q3

REPORT INFORMATION
  Report Type: Spontaneous
  Country: ES (occurrence: ES)
  Receive Date: 20210909
  Receipt Date: 20210909
  Transmission Date: 20211014
  Serious: Yes (Other)
  Sender: FDA-Public Use
  Company Number: ES-PFIZER INC-202101136299

PATIENT
  Age: 76 Year
  Sex: Male

DRUGS (2)
  1. LYRICA [Suspect]
     Active Substance: PREGABALIN
     Dosage: 250 MG
  2. LYRICA [Suspect]
     Active Substance: PREGABALIN
     Indication: INTERVERTEBRAL DISC PROTRUSION
     Dosage: 300 MG

REACTIONS (8)
  - Drug dependence [Unknown]
  - Depression suicidal [Unknown]
  - Irritability [Unknown]
  - Insomnia [Unknown]
  - Feeling abnormal [Unknown]
  - Depression [Unknown]
  - Toxicity to various agents [Unknown]
  - Fatigue [Unknown]
